FAERS Safety Report 10184325 (Version 1)
Quarter: 2014Q2

REPORT INFORMATION
  Report Type: Spontaneous
  Country: BR (occurrence: BR)
  Receive Date: 20140520
  Receipt Date: 20140520
  Transmission Date: 20141212
  Serious: Yes (Hospitalization)
  Sender: FDA-Public Use
  Company Number: BR-ABBVIE-14P-020-1237586-00

PATIENT
  Sex: Male

DRUGS (3)
  1. HUMIRA [Suspect]
     Indication: COLITIS ULCERATIVE
  2. MESALAZINE [Concomitant]
     Indication: COLITIS ULCERATIVE
  3. UNSPECIFIED PROTON PUMP INHIBITOR [Concomitant]
     Indication: GASTRIC DISORDER

REACTIONS (4)
  - Amnesia [Recovered/Resolved]
  - Unresponsive to stimuli [Recovered/Resolved]
  - Catatonia [Recovered/Resolved]
  - Off label use [Unknown]
